FAERS Safety Report 5040039-9 (Version None)
Quarter: 2006Q2

REPORT INFORMATION
  Report Type: 
  Country: None (occurrence: None)
  Receive Date: 20060630
  Receipt Date: 20060620
  Transmission Date: 20061013
  Serious: Yes (Other)
  Sender: FDA-Public Use
  Company Number: US-JNJFOC-20060604825

PATIENT
  Age: 38 Year
  Sex: Female

DRUGS (4)
  1. RISPERDAL [Suspect]
     Indication: PSYCHOTIC DISORDER
     Dosage: 1-2 MG/DAY
     Route: 048
  2. RISPERDAL [Suspect]
     Indication: SCHIZOPHRENIA
     Dosage: 1-2 MG/DAY
     Route: 048
  3. SEROQUEL [Concomitant]
  4. LEXAPRO [Concomitant]

REACTIONS (3)
  - PITUITARY TUMOUR [None]
  - PSYCHOTIC DISORDER [None]
  - TARDIVE DYSKINESIA [None]
